FAERS Safety Report 9609626 (Version 1)
Quarter: 2013Q4

REPORT INFORMATION
  Report Type: Spontaneous
  Country: US (occurrence: None)
  Receive Date: 20131008
  Receipt Date: 20131008
  Transmission Date: 20140711
  Serious: Yes (Life-Threatening, Hospitalization)
  Sender: FDA-Public Use
  Company Number: None

PATIENT
  Age: 66 Year
  Sex: Male
  Weight: 132.1 kg

DRUGS (1)
  1. VANCOMYCIN [Suspect]
     Indication: DEVICE RELATED INFECTION
     Route: 042
     Dates: start: 20120815, end: 20120815

REACTIONS (5)
  - Tachycardia [None]
  - Respiratory distress [None]
  - Hypercapnia [None]
  - Dyspnoea [None]
  - Respiratory depression [None]
